FAERS Safety Report 6074112-3 (Version None)
Quarter: 2009Q1

REPORT INFORMATION
  Report Type: 
  Country: None (occurrence: None)
  Receive Date: 20090211
  Receipt Date: 20090205
  Transmission Date: 20090719
  Serious: Yes (Other)
  Sender: FDA-Public Use
  Company Number: B0556904A

PATIENT
  Age: 6 Year
  Sex: Male

DRUGS (4)
  1. RELENZA [Suspect]
     Route: 055
     Dates: start: 20090105, end: 20090107
  2. FLOMOX [Concomitant]
     Route: 048
  3. ASVERIN [Concomitant]
     Route: 048
  4. BIOFERMIN R [Concomitant]
     Route: 048

REACTIONS (3)
  - ABNORMAL BEHAVIOUR [None]
  - COGNITIVE DISORDER [None]
  - SPEECH DISORDER [None]
